FAERS Safety Report 16659391 (Version 2)
Quarter: 2019Q3

REPORT INFORMATION
  Report Type: Report from Study
  Country: US (occurrence: US)
  Receive Date: 20190802
  Receipt Date: 20190808
  Transmission Date: 20191004
  Serious: Yes (Death)
  Sender: FDA-Public Use
  Company Number: PHEH2019US031793

PATIENT
  Age: 73 Year
  Sex: Male

DRUGS (3)
  1. ENTRESTO [Suspect]
     Active Substance: SACUBITRIL\VALSARTAN
     Indication: CARDIAC FAILURE
     Dosage: 50 MG, UNK
     Route: 048
  2. HYDROCHLOROTHIAZIDE. [Suspect]
     Active Substance: HYDROCHLOROTHIAZIDE
     Indication: PERIPHERAL SWELLING
     Dosage: UNK
     Route: 065
  3. LASIX [Suspect]
     Active Substance: FUROSEMIDE
     Indication: PERIPHERAL SWELLING
     Dosage: UNK
     Route: 048

REACTIONS (9)
  - Hypotension [Unknown]
  - Fall [Unknown]
  - Rash macular [Unknown]
  - Rash [Unknown]
  - Death [Fatal]
  - Peripheral swelling [Unknown]
  - Muscular weakness [Unknown]
  - Decreased appetite [Unknown]
  - Pruritus [Unknown]

NARRATIVE: CASE EVENT DATE: 20190802
